FAERS Safety Report 9995296 (Version 2)
Quarter: 2014Q2

REPORT INFORMATION
  Report Type: Spontaneous
  Country: JP (occurrence: JP)
  Receive Date: 20140311
  Receipt Date: 20140513
  Transmission Date: 20141212
  Serious: Yes (Hospitalization, Other)
  Sender: FDA-Public Use
  Company Number: JP-ASTELLAS-2014JP001809

PATIENT
  Age: 1 Year
  Sex: Female

DRUGS (9)
  1. PROGRAF [Suspect]
     Indication: PROPHYLAXIS AGAINST GRAFT VERSUS HOST DISEASE
     Route: 041
  2. METHOTREXATE [Concomitant]
     Indication: PROPHYLAXIS AGAINST GRAFT VERSUS HOST DISEASE
     Route: 065
  3. METHOTREXATE [Concomitant]
     Route: 065
  4. FLUDARABINE [Concomitant]
     Indication: PREMEDICATION
     Route: 065
  5. MELPHALAN [Concomitant]
     Indication: PREMEDICATION
     Route: 065
  6. ANTIBIOTICS [Concomitant]
     Indication: PROPHYLAXIS
     Route: 065
  7. ANTIFUNGALS [Concomitant]
     Indication: PROPHYLAXIS
     Route: 065
  8. GRANULOCYTE COLONY-STIMULATING FACTOR NOS [Concomitant]
     Indication: PRODUCT USED FOR UNKNOWN INDICATION
     Route: 065
  9. CANDESARTAN                        /01349502/ [Concomitant]
     Indication: PROPHYLAXIS
     Route: 065

REACTIONS (4)
  - Toxic encephalopathy [Unknown]
  - Acute graft versus host disease [Unknown]
  - Chronic graft versus host disease [Unknown]
  - Drug ineffective [Unknown]
